FAERS Safety Report 8129989-4 (Version None)
Quarter: 2012Q1

REPORT INFORMATION
  Report Type: 
  Country: None (occurrence: None)
  Receive Date: 20120210
  Receipt Date: 20120131
  Transmission Date: 20120608
  Serious: Yes (Other)
  Sender: FDA-Public Use
  Company Number: US-ABBOTT-12P-163-0900993-00

PATIENT
  Sex: Female
  Weight: 88.076 kg

DRUGS (14)
  1. AMLODIPINE [Concomitant]
     Indication: PRODUCT USED FOR UNKNOWN INDICATION
  2. DEXILANT [Concomitant]
     Indication: PRODUCT USED FOR UNKNOWN INDICATION
  3. PREDNISONE [Suspect]
     Indication: CROHN'S DISEASE
  4. BETAPACE [Concomitant]
     Indication: CARDIAC DISORDER
  5. UNNAMED THYROID MEDICATION [Concomitant]
     Indication: HYPOTHYROIDISM
  6. MACROBID [Concomitant]
     Indication: PROPHYLAXIS
  7. VITAMIN B-12 [Concomitant]
     Indication: VITAMIN SUPPLEMENTATION
  8. HUMIRA [Suspect]
     Indication: CROHN'S DISEASE
     Dates: start: 20110501
  9. POTASSIUM [Concomitant]
     Indication: MINERAL SUPPLEMENTATION
  10. FOLIC ACID [Concomitant]
     Indication: VITAMIN SUPPLEMENTATION
  11. UNNAMED MEDICATION [Concomitant]
     Indication: HYPERTENSION
  12. MACROBID [Concomitant]
     Indication: URINARY TRACT INFECTION
  13. UNNAMED VITAMIN [Concomitant]
     Indication: VITAMIN SUPPLEMENTATION
  14. INSULIN [Concomitant]
     Indication: DIABETES MELLITUS

REACTIONS (13)
  - OEDEMA PERIPHERAL [None]
  - SWELLING FACE [None]
  - ARTHRALGIA [None]
  - IMPATIENCE [None]
  - CYSTITIS [None]
  - RECTAL HAEMORRHAGE [None]
  - FEELING ABNORMAL [None]
  - CHEST DISCOMFORT [None]
  - ANGER [None]
  - ASTHENIA [None]
  - IMPAIRED HEALING [None]
  - THERAPEUTIC RESPONSE UNEXPECTED [None]
  - CYST [None]
